FAERS Safety Report 23783222 (Version 1)
Quarter: 2024Q2

REPORT INFORMATION
  Report Type: Report from Study
  Country: US (occurrence: US)
  Receive Date: 20240425
  Receipt Date: 20240425
  Transmission Date: 20240715
  Serious: Yes (Hospitalization, Other)
  Sender: FDA-Public Use
  Company Number: US-Zuellig Korea-ATNAHS20240401201

PATIENT
  Age: 65 Year
  Sex: Male
  Weight: 93 kg

DRUGS (16)
  1. VALIUM [Suspect]
     Active Substance: DIAZEPAM
     Indication: Agitation
     Dates: start: 202402
  2. VALIUM [Suspect]
     Active Substance: DIAZEPAM
  3. TYVASO [Suspect]
     Active Substance: TREPROSTINIL
     Indication: Pulmonary hypertension
     Route: 050
  4. TYVASO [Suspect]
     Active Substance: TREPROSTINIL
     Indication: Pulmonary hypertension
     Dates: start: 20240112
  5. PROAIR HFA [Concomitant]
     Active Substance: ALBUTEROL SULFATE
     Indication: Product used for unknown indication
     Dates: start: 20240104
  6. PROVENTIL [Concomitant]
     Active Substance: ALBUTEROL
     Indication: Product used for unknown indication
  7. LANOXIN [Concomitant]
     Active Substance: DIGOXIN
     Indication: Product used for unknown indication
     Dates: start: 20240115
  8. Multivital [Concomitant]
     Indication: Product used for unknown indication
  9. Trelegy ellita [Concomitant]
     Indication: Product used for unknown indication
     Dates: start: 20240115
  10. ATROVENT [Concomitant]
     Active Substance: IPRATROPIUM BROMIDE
     Indication: Product used for unknown indication
     Dates: start: 20230530
  11. TOPROL XL [Concomitant]
     Active Substance: METOPROLOL SUCCINATE
     Indication: Product used for unknown indication
     Dates: start: 20240115
  12. OXYGEN [Concomitant]
     Active Substance: OXYGEN
     Indication: Product used for unknown indication
  13. XARELTO [Concomitant]
     Active Substance: RIVAROXABAN
     Indication: Product used for unknown indication
     Dates: start: 20240115
  14. ALDACTONE [Concomitant]
     Active Substance: SPIRONOLACTONE
     Indication: Product used for unknown indication
     Dates: start: 20240115
  15. DEMADEX [Concomitant]
     Active Substance: TORSEMIDE
     Indication: Product used for unknown indication
     Dates: start: 20240118, end: 20240222
  16. ABILIFY [Concomitant]
     Active Substance: ARIPIPRAZOLE
     Indication: Agitation
     Route: 050

REACTIONS (9)
  - Mania [Recovered/Resolved]
  - Acute psychosis [Recovered/Resolved]
  - Unresponsive to stimuli [Recovered/Resolved]
  - Dyspnoea [Unknown]
  - Cough [Unknown]
  - Myalgia [Unknown]
  - Arthralgia [Unknown]
  - Euphoric mood [Unknown]
  - Contusion [Unknown]

NARRATIVE: CASE EVENT DATE: 20240207
